FAERS Safety Report 18605491 (Version 1)
Quarter: 2020Q4

REPORT INFORMATION
  Report Type: Spontaneous
  Country: FR (occurrence: FR)
  Receive Date: 20201211
  Receipt Date: 20201211
  Transmission Date: 20210114
  Serious: Yes (Hospitalization)
  Sender: FDA-Public Use
  Company Number: FR-PFIZER INC-2020484285

PATIENT
  Age: 41 Year
  Sex: Male

DRUGS (2)
  1. ESMERON [Suspect]
     Active Substance: ROCURONIUM BROMIDE
     Indication: CORONAVIRUS INFECTION
     Route: 042
     Dates: start: 20201109, end: 20201116
  2. METHYLPREDNISOLONE SODIUM SUCCINATE. [Suspect]
     Active Substance: METHYLPREDNISOLONE SODIUM SUCCINATE
     Indication: CORONAVIRUS INFECTION
     Dosage: 120 MG (CHANGE TO 240 MG / DAY FROM 12NOV TO 17NOV)
     Route: 042
     Dates: start: 20201109

REACTIONS (6)
  - Renal failure [Not Recovered/Not Resolved]
  - Cell death [Not Recovered/Not Resolved]
  - Rhabdomyolysis [Recovered/Resolved]
  - Cholestasis [Not Recovered/Not Resolved]
  - Respiratory distress [Not Recovered/Not Resolved]
  - Off label use [Unknown]

NARRATIVE: CASE EVENT DATE: 20201109
